FAERS Safety Report 7381875-3 (Version None)
Quarter: 2011Q1

REPORT INFORMATION
  Report Type: 
  Country: None (occurrence: None)
  Receive Date: 20110322
  Receipt Date: 20110310
  Transmission Date: 20110831
  Serious: Yes (Hospitalization)
  Sender: FDA-Public Use
  Company Number: 2011SP011130

PATIENT
  Age: 19 Year
  Sex: Female

DRUGS (1)
  1. IMPLANON [Suspect]
     Indication: CONTRACEPTION
     Dosage: 1 DF; ONCE; SC
     Route: 058
     Dates: start: 20100101, end: 20100901

REACTIONS (4)
  - ERYSIPELAS [None]
  - FEMORAL ARTERIAL STENOSIS [None]
  - PELVIC VENOUS THROMBOSIS [None]
  - MEDICAL DEVICE COMPLICATION [None]
